FAERS Safety Report 24553649 (Version 1)
Quarter: 2024Q4

REPORT INFORMATION
  Report Type: Spontaneous
  Country: CA (occurrence: CA)
  Receive Date: 20241028
  Receipt Date: 20241028
  Transmission Date: 20250114
  Serious: Yes (Other)
  Sender: ROCHE
  Company Number: CA-002147023-NVSC2024CA205725

PATIENT
  Age: 34 Year
  Sex: Female

DRUGS (2)
  1. OMALIZUMAB [Suspect]
     Active Substance: OMALIZUMAB
     Indication: Chronic spontaneous urticaria
     Dosage: 300 MG, Q4W
     Route: 050
  2. EPINEPHRINE [Suspect]
     Active Substance: EPINEPHRINE
     Indication: Product used for unknown indication
     Dosage: UNK
     Route: 065

REACTIONS (6)
  - Urticaria [Recovering/Resolving]
  - Myocardial infarction [Recovering/Resolving]
  - Food allergy [Recovering/Resolving]
  - Memory impairment [Recovering/Resolving]
  - Nervousness [Recovering/Resolving]
  - Perfume sensitivity [Recovering/Resolving]
